FAERS Safety Report 7378261-9 (Version None)
Quarter: 2011Q1

REPORT INFORMATION
  Report Type: 
  Country: None (occurrence: None)
  Receive Date: 20110328
  Receipt Date: 20110318
  Transmission Date: 20110831
  Serious: Yes (Hospitalization)
  Sender: FDA-Public Use
  Company Number: B0708795A

PATIENT
  Sex: Male

DRUGS (12)
  1. CONTRAMAL [Suspect]
     Route: 042
     Dates: start: 20101125
  2. MOPRAL [Suspect]
     Dosage: 40MG PER DAY
     Route: 042
     Dates: start: 20101215, end: 20101215
  3. ACUPAN [Concomitant]
     Dosage: 5VIAL PER DAY
     Route: 042
     Dates: start: 20101104
  4. KETAMINE HCL [Concomitant]
     Route: 042
     Dates: start: 20101214, end: 20101215
  5. LOVENOX [Concomitant]
     Route: 058
     Dates: start: 20101104
  6. CLINOMEL [Concomitant]
     Indication: PARENTERAL NUTRITION
     Route: 042
     Dates: start: 20101202
  7. SPASFON [Concomitant]
     Dosage: 2VIAL THREE TIMES PER DAY
     Route: 042
     Dates: start: 20101207
  8. MORPHINE [Concomitant]
     Route: 042
     Dates: start: 20101104
  9. EUPANTOL [Suspect]
     Dosage: 1UNIT IN THE MORNING
     Route: 042
     Dates: start: 20101104, end: 20101214
  10. PARACETAMOL [Suspect]
     Dosage: 1G FOUR TIMES PER DAY
     Route: 042
     Dates: start: 20101104
  11. ZOPHREN [Suspect]
     Dosage: 1UNIT THREE TIMES PER DAY
     Route: 042
     Dates: start: 20101203
  12. ATARAX [Suspect]
     Dosage: 50MG TWICE PER DAY
     Route: 042
     Dates: start: 20101207

REACTIONS (4)
  - VERTIGO [None]
  - HYPERHIDROSIS [None]
  - VISION BLURRED [None]
  - MALAISE [None]
